FAERS Safety Report 10421922 (Version 2)
Quarter: 2014Q3

REPORT INFORMATION
  Report Type: Report from Study
  Country: AU (occurrence: AU)
  Receive Date: 20140901
  Receipt Date: 20140916
  Transmission Date: 20150326
  Serious: Yes (Hospitalization, Other)
  Sender: FDA-Public Use
  Company Number: PHHY2014AU107509

PATIENT
  Age: 78 Year
  Sex: Male
  Weight: 66.7 kg

DRUGS (26)
  1. DIAFORMIN [Concomitant]
     Active Substance: METFORMIN HYDROCHLORIDE
     Indication: TYPE 2 DIABETES MELLITUS
     Dosage: 500 MG,
     Route: 048
  2. WARFARIN SODIUM. [Concomitant]
     Active Substance: WARFARIN SODIUM
     Indication: MITRAL VALVE REPLACEMENT
     Dosage: 2 MG,  NOCTE MDU
     Route: 048
  3. WARFARIN SODIUM. [Concomitant]
     Active Substance: WARFARIN SODIUM
     Indication: AORTIC VALVE REPLACEMENT
     Dosage: 5 MG , NOCTE MDU
     Route: 048
  4. UREMIDE [Concomitant]
     Active Substance: FUROSEMIDE
     Indication: CARDIAC FAILURE CONGESTIVE
     Dosage: 40 MG, 1.5 MANE
     Route: 048
  5. NITROLINGUAL-SPRAY N [Concomitant]
     Indication: CORONARY ARTERY BYPASS
     Dosage: 1 DF, PRN
     Route: 060
  6. AVANZA [Concomitant]
     Active Substance: MIRTAZAPINE
     Indication: ANXIETY
     Dosage: 0.5 DF, QHS
     Route: 048
  7. DIAMICRON MR [Concomitant]
     Active Substance: GLICLAZIDE
     Indication: TYPE 2 DIABETES MELLITUS
     Dosage: 1 MANE
     Route: 048
  8. FERRO-F                            /00172901/ [Concomitant]
     Indication: IRON DEFICIENCY ANAEMIA
     Dosage: 310MG/350MC, DAILY
     Route: 048
  9. LIPITOR [Concomitant]
     Active Substance: ATORVASTATIN CALCIUM
     Indication: HYPERCHOLESTEROLAEMIA
     Dosage: 80 MG, 1 NOCTE
     Route: 048
  10. ADT [Concomitant]
     Active Substance: AMITRIPTYLINE HYDROCHLORIDE
     Dosage: UNK UKN, UNK
     Dates: start: 20001217
  11. FLUVAX [Concomitant]
     Active Substance: INFLUENZA VIRUS VACCINE
     Dosage: UNK UKN, UNK
     Dates: start: 20130227
  12. ACLASTA [Suspect]
     Active Substance: ZOLEDRONIC ACID
     Indication: OSTEOPOROTIC FRACTURE
     Dosage: 5 MG, YEARLY
     Route: 042
     Dates: start: 20130508
  13. NORSPAN [Concomitant]
     Active Substance: BUPRENORPHINE
     Indication: BACK PAIN
     Dosage: 5 MG/H, QH
     Route: 062
  14. TEMAZEPAM. [Concomitant]
     Active Substance: TEMAZEPAM
     Indication: INSOMNIA
     Dosage: 10 MG, 1/2 TO 1 NOCTE, PRN
     Route: 048
  15. FLUVAX [Concomitant]
     Active Substance: INFLUENZA VIRUS VACCINE
     Dosage: UNK UKN, UNK
     Dates: start: 20140312
  16. CORTIC-DS [Concomitant]
     Indication: DERMATITIS
     Dosage: 1 %, APPLY BID PRN
     Route: 061
  17. OSTELIN VITAMIN D [Concomitant]
     Indication: VITAMIN D DEFICIENCY
     Dosage: 1000 U, QD
     Route: 048
  18. PANAMAX [Concomitant]
     Active Substance: ACETAMINOPHEN
     Indication: PAIN
     Dosage: 2 DF, Q4H
     Route: 048
  19. WARFARIN SODIUM. [Concomitant]
     Active Substance: WARFARIN SODIUM
     Dosage: 1 MG,  NOCTE MDU
     Route: 048
  20. PNEUMOVAX 23 [Concomitant]
     Active Substance: PNEUMOCOCCAL VACCINE, POLYVALENT 23
     Dosage: UNK UKN, UNK
     Dates: start: 20001217
  21. CALTRATE [Concomitant]
     Active Substance: CALCIUM CARBONATE
     Indication: VITAMIN D DEFICIENCY
     Dosage: 600 MG,DAILTY, (1500 MG EQUIVALENT TO 600 MG CA 1%)
     Route: 048
  22. NEO B12 [Concomitant]
     Indication: VITAMIN B12 DEFICIENCY
     Dosage: 1 ML IM 3 MONTHLY
     Route: 030
  23. RHINOCORT [Concomitant]
     Active Substance: BUDESONIDE
     Indication: SEASONAL ALLERGY
     Dosage: 64,MCG/DOSE, 1 PUFF BD BOTH SIDES
     Route: 045
  24. SOMAC [Concomitant]
     Active Substance: PANTOPRAZOLE SODIUM
     Indication: GASTROOESOPHAGEAL REFLUX DISEASE
     Dosage: 20 MG, QD
     Route: 048
  25. SPIRACTIN//SPIRONOLACTONE [Concomitant]
     Indication: CARDIAC FAILURE CONGESTIVE
     Dosage: 25 MG, 1/2 MANE
     Route: 048
  26. INFLUENZA [Concomitant]
     Active Substance: INFLUENZA VIRUS VACCINE
     Dosage: UNK UKN, UNK
     Dates: start: 20120307

REACTIONS (11)
  - Haemoglobin decreased [Unknown]
  - Gamma-glutamyltransferase increased [Unknown]
  - Blood creatinine increased [Unknown]
  - Mean cell volume increased [Unknown]
  - Liver disorder [Unknown]
  - Blood alkaline phosphatase increased [Unknown]
  - Red blood cell sedimentation rate increased [Unknown]
  - Gait disturbance [Unknown]
  - Red cell distribution width increased [Unknown]
  - Cardiac valve disease [Unknown]
  - Red blood cell count decreased [Unknown]

NARRATIVE: CASE EVENT DATE: 20140307
